FAERS Safety Report 7741829-1 (Version None)
Quarter: 2011Q3

REPORT INFORMATION
  Report Type: 
  Country: None (occurrence: None)
  Receive Date: 20110906
  Receipt Date: 20110823
  Transmission Date: 20111222
  Serious: Yes (Other)
  Sender: FDA-Public Use
  Company Number: DSJ-2011-18727

PATIENT
  Sex: Female

DRUGS (5)
  1. BENICAR HCT [Suspect]
     Indication: HYPERTENSION
     Dosage: 40/25 MG (1 IN 1 D),PER ORAL
     Route: 048
     Dates: start: 20080101
  2. OMEPRAZOLE [Concomitant]
  3. VERAPAMIL [Concomitant]
  4. BENICAR [Suspect]
     Indication: HYPERTENSION
     Dosage: 40 MG (40 MG,1 IN 1 D),PER ORAL
     Route: 048
     Dates: start: 20100101
  5. ACETYLSALICYLIC ACID SRT [Concomitant]

REACTIONS (3)
  - HYPERGLYCAEMIA [None]
  - ARTERIOSCLEROSIS CORONARY ARTERY [None]
  - OVERDOSE [None]
